FAERS Safety Report 11374342 (Version 1)
Quarter: 2015Q3

REPORT INFORMATION
  Report Type: Spontaneous
  Country: US (occurrence: None)
  Receive Date: 20150812
  Receipt Date: 20150812
  Transmission Date: 20151125
  Serious: Yes (Other)
  Sender: FDA-Public Use
  Company Number: None

PATIENT

DRUGS (1)
  1. CARDINAL HEALTH SALINE WIPE- STERILE CARDINAL HEALTH [Suspect]
     Active Substance: SODIUM CHLORIDE
     Dates: start: 20150805

REACTIONS (3)
  - Bacillus test positive [None]
  - Product quality issue [None]
  - Bacillus bacteraemia [None]

NARRATIVE: CASE EVENT DATE: 20150805
